FAERS Safety Report 13594880 (Version 2)
Quarter: 2017Q2

REPORT INFORMATION
  Report Type: Report from Study
  Country: US (occurrence: US)
  Receive Date: 20170530
  Receipt Date: 20170608
  Transmission Date: 20170830
  Serious: Yes (Hospitalization, Other)
  Sender: FDA-Public Use
  Company Number: US-MYLANLABS-2017M1032258

PATIENT

DRUGS (4)
  1. CLOZAPINE. [Suspect]
     Active Substance: CLOZAPINE
     Indication: PRODUCT USED FOR UNKNOWN INDICATION
     Dosage: 400 MG, QD
  2. CLOZAPINE. [Interacting]
     Active Substance: CLOZAPINE
     Dosage: UNK
  3. ZIPRASIDONE. [Interacting]
     Active Substance: ZIPRASIDONE
     Indication: PRODUCT USED FOR UNKNOWN INDICATION
  4. BENZTROPINE [Interacting]
     Active Substance: BENZTROPINE
     Indication: PRODUCT USED FOR UNKNOWN INDICATION

REACTIONS (6)
  - Antipsychotic drug level above therapeutic [Unknown]
  - Drug interaction [Unknown]
  - Ileus [Unknown]
  - Hypotension [Unknown]
  - Pneumonia [Unknown]
  - Dizziness [Unknown]
